FAERS Safety Report 6823539-8 (Version None)
Quarter: 2010Q2

REPORT INFORMATION
  Report Type: 
  Country: None (occurrence: None)
  Receive Date: 20100520
  Receipt Date: 20100424
  Transmission Date: 20101027
  Serious: Yes (Other)
  Sender: FDA-Public Use
  Company Number: 2009204495

PATIENT
  Age: 60 Year
  Sex: Female
  Weight: 77 kg

DRUGS (4)
  1. PROVERA [Suspect]
     Dosage: , ORAL
     Route: 048
  2. PREMPRO [Suspect]
     Dates: end: 19970501
  3. PREMARIN [Suspect]
  4. ASPIRIN [Concomitant]

REACTIONS (1)
  - BREAST CANCER [None]
